FAERS Safety Report 11876482 (Version 1)
Quarter: 2015Q4

REPORT INFORMATION
  Report Type: Spontaneous
  Country: IL (occurrence: IL)
  Receive Date: 20151229
  Receipt Date: 20151229
  Transmission Date: 20160305
  Serious: Yes (Other)
  Sender: FDA-Public Use
  Company Number: IL-HQ SPECIALTY-IL-2015INT000730

PATIENT
  Sex: Male

DRUGS (4)
  1. METHOTREXATE [Suspect]
     Active Substance: METHOTREXATE
     Indication: OSTEOSARCOMA
     Dosage: 12-30 G/M2, ONCE-WEEKLY PULSES HIGH-DOSE
     Route: 042
  2. DOXORUBICIN [Suspect]
     Active Substance: DOXORUBICIN
     Indication: OSTEOSARCOMA
     Dosage: 90 MG/M2, A TOTAL DOSE OF 360 MG/M2
     Route: 042
  3. DEXRAZOXANE. [Suspect]
     Active Substance: DEXRAZOXANE
     Indication: OSTEOSARCOMA
     Dosage: UNK
     Route: 042
  4. CISPLATIN. [Suspect]
     Active Substance: CISPLATIN
     Indication: OSTEOSARCOMA
     Dosage: 200 MG/M2, UP TO A TOTAL DOSE OF 560 MG/M2
     Route: 042

REACTIONS (1)
  - Azoospermia [Unknown]
